FAERS Safety Report 10277264 (Version 2)
Quarter: 2016Q3

REPORT INFORMATION
  Report Type: Report from Study
  Country: GB (occurrence: GB)
  Receive Date: 20140703
  Receipt Date: 20160824
  Transmission Date: 20161109
  Serious: Yes (Death, Hospitalization)
  Sender: FDA-Public Use
  Company Number: GB-ABBVIE-14P-167-1255494-00

PATIENT
  Sex: Male
  Weight: 65 kg

DRUGS (1)
  1. HUMIRA [Suspect]
     Active Substance: ADALIMUMAB
     Indication: PSORIASIS
     Route: 058
     Dates: start: 20130206

REACTIONS (13)
  - Psoriasis [Unknown]
  - Varices oesophageal [Unknown]
  - Haematemesis [Unknown]
  - Abnormal behaviour [Unknown]
  - Mental disorder [Unknown]
  - Ascites [Unknown]
  - Jaundice [Unknown]
  - Chronic obstructive pulmonary disease [Unknown]
  - Streptococcal sepsis [Unknown]
  - Chronic kidney disease [Unknown]
  - Alcoholic liver disease [Fatal]
  - Melaena [Unknown]
  - Non-small cell lung cancer [Fatal]
